FAERS Safety Report 7742820-1 (Version None)
Quarter: 2011Q3

REPORT INFORMATION
  Report Type: 
  Country: None (occurrence: None)
  Receive Date: 20110912
  Receipt Date: 20110902
  Transmission Date: 20111222
  Serious: Yes (Life-Threatening, Hospitalization)
  Sender: FDA-Public Use
  Company Number: GB-JNJFOC-20110903382

PATIENT
  Age: 66 Year
  Sex: Male

DRUGS (7)
  1. GABAPENTIN [Concomitant]
     Indication: NEURALGIA
     Route: 065
     Dates: start: 20100201
  2. PALEXIA [Suspect]
     Indication: ANALGESIC THERAPY
     Dosage: ONCE DAILY
     Route: 048
     Dates: start: 20110808
  3. ASPIRIN [Concomitant]
     Indication: ANTIPLATELET THERAPY
     Route: 065
     Dates: start: 20101210
  4. LYRICA [Concomitant]
     Indication: NEURALGIA
     Route: 065
     Dates: start: 20101021, end: 20110716
  5. NEBIVOLOL HCL [Concomitant]
     Indication: ARRHYTHMIA
     Route: 065
     Dates: start: 20101009
  6. PALEXIA [Suspect]
     Dosage: TWICE DAILY
     Route: 048
     Dates: start: 20110815, end: 20110815
  7. HYOSCINE [Concomitant]
     Indication: IRRITABLE BOWEL SYNDROME
     Route: 065
     Dates: start: 20100201

REACTIONS (2)
  - TRANSIENT ISCHAEMIC ATTACK [None]
  - CONVULSION [None]
